FAERS Safety Report 18059496 (Version 2)
Quarter: 2021Q2

REPORT INFORMATION
  Report Type: Spontaneous
  Country: US (occurrence: US)
  Receive Date: 20200723
  Receipt Date: 20210624
  Transmission Date: 20210717
  Serious: Yes (Hospitalization, Other)
  Sender: FDA-Public Use
  Company Number: US-PFIZER INC-2017081238

PATIENT
  Age: 74 Year
  Sex: Male
  Weight: 125 kg

DRUGS (11)
  1. PLAVIX [Concomitant]
     Active Substance: CLOPIDOGREL BISULFATE
     Dosage: UNK
  2. AVAPRO [Concomitant]
     Active Substance: IRBESARTAN
     Dosage: UNK
  3. SKELAXIN [Concomitant]
     Active Substance: METAXALONE
     Dosage: UNK
  4. FORTAMET [Concomitant]
     Active Substance: METFORMIN HYDROCHLORIDE
     Dosage: UNK
  5. XANAX [Concomitant]
     Active Substance: ALPRAZOLAM
     Dosage: UNK
  6. OXYCODONE [Concomitant]
     Active Substance: OXYCODONE
     Dosage: UNK
  7. RESTORIL [CHLORMEZANONE] [Concomitant]
     Active Substance: CHLORMEZANONE
     Dosage: UNK
  8. NITROGLYCERINE [Concomitant]
     Active Substance: NITROGLYCERIN
     Dosage: UNK
  9. LYRICA [Suspect]
     Active Substance: PREGABALIN
     Indication: PAIN
     Dosage: 200 MG, 3X/DAY
     Route: 048
  10. LIPITOR [Concomitant]
     Active Substance: ATORVASTATIN CALCIUM
     Dosage: UNK
  11. LYRICA [Suspect]
     Active Substance: PREGABALIN
     Indication: PAIN IN EXTREMITY

REACTIONS (9)
  - Haemorrhage [Unknown]
  - Amnesia [Unknown]
  - Nausea [Recovered/Resolved]
  - Eating disorder [Unknown]
  - Illness [Unknown]
  - Abdominal pain upper [Unknown]
  - Pain [Unknown]
  - Reading disorder [Unknown]
  - Insomnia [Unknown]
